FAERS Safety Report 21555837 (Version 1)
Quarter: 2022Q4

REPORT INFORMATION
  Report Type: Spontaneous
  Country: NL (occurrence: NL)
  Receive Date: 20221104
  Receipt Date: 20221104
  Transmission Date: 20230113
  Serious: Yes (Other)
  Sender: FDA-Public Use
  Company Number: None

PATIENT
  Sex: Female
  Weight: 55 kg

DRUGS (2)
  1. ETHINYL ESTRADIOL\LEVONORGESTREL [Suspect]
     Active Substance: ETHINYL ESTRADIOL\LEVONORGESTREL
     Indication: Menstrual cycle management
     Dosage: 1 DOSAGE FORMS DAILY; 1 X PER DAY 1 PIECE, ETHINYLESTRADIOL/LEVONORGESTREL TABLET 30/150UG / BRAND N
     Route: 065
     Dates: start: 20220810, end: 20220902
  2. ESOMEPRAZOLE [Concomitant]
     Active Substance: ESOMEPRAZOLE
     Indication: Product used for unknown indication
     Dosage: 40 MG (MILLIGRAMS), ESOMEPRAZOL CAPSULE MSR 40MG / BRAND NAME NOT SPECIFIED, THERAPY START AND END D

REACTIONS (6)
  - Hepatic enzyme increased [Recovering/Resolving]
  - Pruritus [Recovering/Resolving]
  - Fatigue [Recovering/Resolving]
  - Constipation [Recovering/Resolving]
  - Nausea [Recovering/Resolving]
  - Dyspepsia [Recovering/Resolving]
